FAERS Safety Report 11681905 (Version 2)
Quarter: 2015Q4

REPORT INFORMATION
  Report Type: Report from Study
  Country: MX (occurrence: MX)
  Receive Date: 20151029
  Receipt Date: 20151030
  Transmission Date: 20160304
  Serious: Yes (Death, Hospitalization)
  Sender: FDA-Public Use
  Company Number: PHHY2015MX112194

PATIENT
  Sex: Male

DRUGS (4)
  1. EXELON PATCH [Suspect]
     Active Substance: RIVASTIGMINE
     Indication: PARKINSON^S DISEASE
     Dosage: PATCH (10 CM2), QD, STARTED 5 YEARS AGO
     Route: 062
  2. SEROQUEL [Concomitant]
     Active Substance: QUETIAPINE FUMARATE
     Indication: PRODUCT USED FOR UNKNOWN INDICATION
     Route: 065
  3. NUBRENZA [Concomitant]
     Active Substance: ROTIGOTINE
     Indication: PARKINSON^S DISEASE
     Dosage: 1 OT, QD, STARTED 6 YEARS AGO
     Route: 062
  4. STALEVO [Suspect]
     Active Substance: CARBIDOPA\ENTACAPONE\LEVODOPA
     Indication: PARKINSON^S DISEASE
     Dosage: 4 DF, QD, (LEVODOPA200/CARBIDOPA50/ENTACAPONE200), STARTED 5 YEARS AGO
     Route: 065

REACTIONS (6)
  - Product use issue [Unknown]
  - Parkinson^s disease psychosis [Unknown]
  - Influenza [Unknown]
  - Urinary tract infection [Unknown]
  - Lung infection [Fatal]
  - Pharyngitis [Unknown]
